FAERS Safety Report 10176720 (Version 1)
Quarter: 2014Q2

REPORT INFORMATION
  Report Type: Spontaneous
  Country: US (occurrence: None)
  Receive Date: 20140515
  Receipt Date: 20140515
  Transmission Date: 20141212
  Serious: No
  Sender: FDA-Public Use
  Company Number: None

PATIENT
  Age: 73 Year
  Sex: Female
  Weight: 88.45 kg

DRUGS (1)
  1. FIORICET [Suspect]
     Dosage: 1 EVERY FOUR HOURS?AS NEEDED?TAKEN BY MOUTH?
     Route: 048
     Dates: start: 20131229, end: 20140511

REACTIONS (3)
  - Malaise [None]
  - Drug ineffective [None]
  - Product substitution issue [None]
